FAERS Safety Report 10972943 (Version 2)
Quarter: 2015Q2

REPORT INFORMATION
  Report Type: Spontaneous
  Country: US (occurrence: US)
  Receive Date: 20150331
  Receipt Date: 20150525
  Transmission Date: 20150821
  Serious: Yes (Other)
  Sender: FDA-Public Use
  Company Number: US-JNJFOC-20131019440

PATIENT
  Sex: Female
  Weight: 135.63 kg

DRUGS (1)
  1. RISPERDAL [Suspect]
     Active Substance: RISPERIDONE
     Indication: DEMENTIA
     Route: 065
     Dates: start: 201308

REACTIONS (6)
  - Peripheral swelling [Not Recovered/Not Resolved]
  - Chest pain [Unknown]
  - Product use issue [Unknown]
  - Swelling face [Not Recovered/Not Resolved]
  - Nausea [Not Recovered/Not Resolved]
  - Increased appetite [Not Recovered/Not Resolved]

NARRATIVE: CASE EVENT DATE: 2013
